FAERS Safety Report 21500124 (Version 3)
Quarter: 2022Q4

REPORT INFORMATION
  Report Type: Spontaneous
  Country: MX (occurrence: MX)
  Receive Date: 20221024
  Receipt Date: 20221103
  Transmission Date: 20230112
  Serious: Yes (Life-Threatening, Hospitalization, Other)
  Sender: FDA-Public Use
  Company Number: MX-BEH-2022151205

PATIENT
  Age: 23 Year
  Sex: Female
  Weight: 73 kg

DRUGS (3)
  1. HUMAN IMMUNOGLOBULIN G [Suspect]
     Active Substance: HUMAN IMMUNOGLOBULIN G
     Indication: Myasthenia gravis
     Dosage: 5 GRAM, QD
     Route: 042
     Dates: start: 20221018, end: 20221018
  2. PYRIDOSTIGMINE [Concomitant]
     Active Substance: PYRIDOSTIGMINE
     Dosage: UNK
     Route: 065
  3. HYDROCORTISONE [Concomitant]
     Active Substance: HYDROCORTISONE
     Dosage: UNK
     Route: 065

REACTIONS (7)
  - Anaphylactic shock [Not Recovered/Not Resolved]
  - Suspected counterfeit product [Unknown]
  - Product colour issue [Unknown]
  - Organ failure [Unknown]
  - Maternal exposure during pregnancy [Not Recovered/Not Resolved]
  - Maternal exposure during pregnancy [Unknown]
  - Maternal exposure during pregnancy [Unknown]

NARRATIVE: CASE EVENT DATE: 20221018
